FAERS Safety Report 9152458 (Version 2)
Quarter: 2015Q3

REPORT INFORMATION
  Report Type: Spontaneous
  Country: US (occurrence: US)
  Receive Date: 20130308
  Receipt Date: 20150814
  Transmission Date: 20151125
  Serious: Yes (Other)
  Sender: FDA-Public Use
  Company Number: US-ASTRAZENECA-2013SE11018

PATIENT
  Age: 901 Month
  Sex: Female
  Weight: 61.7 kg

DRUGS (10)
  1. NEXIUM [Suspect]
     Active Substance: ESOMEPRAZOLE MAGNESIUM
     Indication: GASTROOESOPHAGEAL REFLUX DISEASE
     Route: 048
     Dates: start: 2009, end: 201302
  2. VITAMIN D [Concomitant]
     Active Substance: CHOLECALCIFEROL
     Indication: BONE LOSS
     Route: 048
     Dates: start: 2014
  3. TUMS [Concomitant]
     Active Substance: CALCIUM CARBONATE
     Dosage: TID
     Route: 048
  4. FOSAMAX [Concomitant]
     Active Substance: ALENDRONATE SODIUM
  5. ZANTAC [Suspect]
     Active Substance: RANITIDINE HYDROCHLORIDE
  6. LIQUID CALCIUM MAGNESIUM CITRATE [Concomitant]
  7. VITAMIN C [Concomitant]
     Active Substance: ASCORBIC ACID
     Indication: UPPER LIMB FRACTURE
     Route: 048
     Dates: start: 2014
  8. VITAMIN B12 [Concomitant]
     Active Substance: CYANOCOBALAMIN
     Indication: VITAMIN SUPPLEMENTATION
     Dosage: MONTH
  9. NEXIUM [Suspect]
     Active Substance: ESOMEPRAZOLE MAGNESIUM
     Indication: GASTROOESOPHAGEAL REFLUX DISEASE
     Route: 048
     Dates: start: 2013, end: 20150803
  10. VITAMIN C [Concomitant]
     Active Substance: ASCORBIC ACID
     Indication: WOUND TREATMENT
     Route: 048
     Dates: start: 2014

REACTIONS (14)
  - Muscle spasms [Unknown]
  - Musculoskeletal stiffness [Unknown]
  - Abdominal pain upper [Unknown]
  - Upper limb fracture [Unknown]
  - Headache [Unknown]
  - Drug dose omission [Unknown]
  - Neuroma [Unknown]
  - Intentional product use issue [Unknown]
  - Inflammation [Unknown]
  - Arthralgia [Unknown]
  - Body height decreased [Unknown]
  - Drug dose omission [Unknown]
  - Nausea [Unknown]
  - Vitamin B12 deficiency [Unknown]

NARRATIVE: CASE EVENT DATE: 201208
